FAERS Safety Report 19266054 (Version 2)
Quarter: 2021Q2

REPORT INFORMATION
  Report Type: Spontaneous
  Country: DE (occurrence: DE)
  Receive Date: 20210518
  Receipt Date: 20210519
  Transmission Date: 20210717
  Serious: Yes (Other)
  Sender: FDA-Public Use
  Company Number: DE-BIOGEN-2021BI01011090

PATIENT
  Age: 67 Year
  Sex: Male

DRUGS (8)
  1. FAMPYRA [Suspect]
     Active Substance: DALFAMPRIDINE
     Indication: PRODUCT USED FOR UNKNOWN INDICATION
     Route: 065
     Dates: end: 202104
  2. COMIRNATY [Concomitant]
     Active Substance: TOZINAMERAN
     Indication: COVID-19 IMMUNISATION
     Dosage: FIRST VACCINATION
     Route: 065
     Dates: start: 20210422
  3. OCREVUS [Suspect]
     Active Substance: OCRELIZUMAB
     Route: 042
     Dates: start: 20201110
  4. CORTISON [Suspect]
     Active Substance: CORTISONE ACETATE
     Indication: PREMEDICATION
     Route: 065
  5. OCREVUS [Suspect]
     Active Substance: OCRELIZUMAB
     Indication: SECONDARY PROGRESSIVE MULTIPLE SCLEROSIS
     Dosage: THE OCRELIZUMAB MAINTENANCE DOSE WAS ADMINISTERED ON 29/MAY/2020 AS PLANNED
     Route: 042
     Dates: start: 20190401, end: 20190401
  6. OCREVUS [Suspect]
     Active Substance: OCRELIZUMAB
     Route: 042
     Dates: start: 20200529
  7. OCREVUS [Suspect]
     Active Substance: OCRELIZUMAB
     Route: 042
     Dates: start: 20191014
  8. OCREVUS [Suspect]
     Active Substance: OCRELIZUMAB
     Route: 042
     Dates: start: 20190415, end: 20190415

REACTIONS (19)
  - Drug ineffective [Unknown]
  - Nasopharyngitis [Recovered/Resolved]
  - Feeling cold [Recovered/Resolved]
  - Trigeminal neuralgia [Recovered/Resolved]
  - Dizziness [Recovered/Resolved]
  - Skin discolouration [Recovered/Resolved]
  - Cognitive disorder [Not Recovered/Not Resolved]
  - Aggression [Recovered/Resolved]
  - Eye pruritus [Unknown]
  - Fall [Unknown]
  - Off label use [Unknown]
  - Skin reaction [Unknown]
  - Flushing [Recovered/Resolved]
  - Asthenia [Not Recovered/Not Resolved]
  - Loss of consciousness [Recovered/Resolved]
  - Pruritus [Unknown]
  - Pancreatic disorder [Recovered/Resolved]
  - Bone contusion [Recovered/Resolved]
  - Chills [Recovered/Resolved]

NARRATIVE: CASE EVENT DATE: 20190402
